FAERS Safety Report 9934765 (Version 2)
Quarter: 2014Q2

REPORT INFORMATION
  Report Type: Spontaneous
  Country: US (occurrence: US)
  Receive Date: 20140228
  Receipt Date: 20140509
  Transmission Date: 20141212
  Serious: Yes (Death, Hospitalization)
  Sender: FDA-Public Use
  Company Number: US-GLAXOSMITHKLINE-A1034448A

PATIENT
  Age: 60 Year
  Sex: Female
  Weight: 111.4 kg

DRUGS (1)
  1. AVANDIA [Suspect]
     Indication: DIABETES MELLITUS
     Route: 048
     Dates: start: 200207, end: 200909

REACTIONS (2)
  - Carotid artery stenosis [Unknown]
  - Cardio-respiratory arrest [Fatal]
